FAERS Safety Report 5804961-5 (Version None)
Quarter: 2008Q3

REPORT INFORMATION
  Report Type: 
  Country: None (occurrence: None)
  Receive Date: 20080709
  Receipt Date: 20080627
  Transmission Date: 20090109
  Serious: Yes (Death, Life-Threatening, Other)
  Sender: FDA-Public Use
  Company Number: JP-PFIZER INC-2008044280

PATIENT
  Age: 79 Year
  Sex: Male

DRUGS (4)
  1. ZYVOX [Suspect]
     Indication: STAPHYLOCOCCAL SEPSIS
     Route: 042
     Dates: start: 20080511, end: 20080526
  2. ANTITHROMBIN III [Concomitant]
     Route: 042
  3. REMINARON [Concomitant]
     Route: 042
  4. OMEPRAL [Concomitant]
     Route: 042

REACTIONS (2)
  - STAPHYLOCOCCAL SEPSIS [None]
  - THROMBOCYTOPENIA [None]
